FAERS Safety Report 5204276-2 (Version None)
Quarter: 2007Q1

REPORT INFORMATION
  Report Type: 
  Country: None (occurrence: None)
  Receive Date: 20070110
  Receipt Date: 20060131
  Transmission Date: 20070707
  Serious: No
  Sender: FDA-Public Use
  Company Number: US-BRISTOL-MYERS SQUIBB COMPANY-13264635

PATIENT
  Age: 16 Year
  Sex: Female
  Weight: 59 kg

DRUGS (5)
  1. ABILIFY [Suspect]
     Indication: BIPOLAR DISORDER
     Route: 048
     Dates: start: 20051001
  2. CYMBALTA [Concomitant]
  3. ORTHO TRI-CYCLEN [Concomitant]
  4. ONE-A-DAY [Concomitant]
  5. PREVACID [Concomitant]

REACTIONS (3)
  - FEELING HOT [None]
  - HEADACHE [None]
  - VOMITING [None]
